FAERS Safety Report 13054965 (Version 2)
Quarter: 2017Q1

REPORT INFORMATION
  Report Type: Spontaneous
  Country: US (occurrence: US)
  Receive Date: 20161222
  Receipt Date: 20170118
  Transmission Date: 20170428
  Serious: No
  Sender: FDA-Public Use
  Company Number: US-INCYTE CORPORATION-2016IN008046

PATIENT
  Age: 81 Year
  Sex: Female

DRUGS (2)
  1. JAKAFI [Suspect]
     Active Substance: RUXOLITINIB
     Dosage: 10 MG IN AM AND 5 MG DAILY
     Route: 048
     Dates: start: 20161217
  2. JAKAFI [Suspect]
     Active Substance: RUXOLITINIB
     Indication: POLYCYTHAEMIA VERA
     Dosage: 5 MG, QHS
     Route: 048
     Dates: start: 20160723

REACTIONS (3)
  - Memory impairment [Unknown]
  - Aphasia [Unknown]
  - Feeling hot [Unknown]

NARRATIVE: CASE EVENT DATE: 20161214
